FAERS Safety Report 11709420 (Version 1)
Quarter: 2015Q4

REPORT INFORMATION
  Report Type: Spontaneous
  Country: US (occurrence: US)
  Receive Date: 20151104
  Receipt Date: 20151104
  Transmission Date: 20160304
  Serious: No
  Sender: FDA-Public Use
  Company Number: US-ELI_LILLY_AND_COMPANY-US201103004864

PATIENT
  Age: 72 Year
  Sex: Female

DRUGS (5)
  1. FORTEO [Suspect]
     Active Substance: TERIPARATIDE
     Dosage: 20 UG, QD
  2. FORTEO [Suspect]
     Active Substance: TERIPARATIDE
     Indication: OSTEOPOROSIS
     Dosage: 20 UG, DAILY (1/D)
     Dates: start: 20101221
  3. CITRACAL + D [Concomitant]
     Active Substance: CALCIUM CITRATE\VITAMIN D
  4. VITAMIN D [Concomitant]
     Active Substance: CHOLECALCIFEROL
     Dosage: 500 IU, QD
  5. MULTIVITAMIN [Concomitant]
     Active Substance: VITAMINS

REACTIONS (19)
  - Back pain [Not Recovered/Not Resolved]
  - Musculoskeletal discomfort [Unknown]
  - Feeling abnormal [Unknown]
  - Tinnitus [Unknown]
  - Pain [Not Recovered/Not Resolved]
  - Pain [Unknown]
  - Influenza like illness [Recovering/Resolving]
  - Muscle spasms [Recovered/Resolved]
  - Arthralgia [Unknown]
  - Arthropathy [Unknown]
  - Musculoskeletal pain [Unknown]
  - Bursitis [Unknown]
  - Dizziness [Unknown]
  - Limb discomfort [Unknown]
  - Asthenia [Not Recovered/Not Resolved]
  - Vitamin D increased [Unknown]
  - Pain in extremity [Not Recovered/Not Resolved]
  - Malaise [Not Recovered/Not Resolved]
  - Myalgia [Recovering/Resolving]

NARRATIVE: CASE EVENT DATE: 201101
